FAERS Safety Report 17158243 (Version 1)
Quarter: 2019Q4

REPORT INFORMATION
  Report Type: Spontaneous
  Country: US (occurrence: US)
  Receive Date: 20191122
  Receipt Date: 20191122
  Transmission Date: 20200122
  Serious: No
  Sender: FDA-Public Use
  Company Number: None

PATIENT
  Age: 62 Year
  Sex: Female
  Weight: 62.14 kg

DRUGS (6)
  1. EVENITY [Suspect]
     Active Substance: ROMOSOZUMAB-AQQG
     Indication: STRESS FRACTURE
     Dates: start: 201909
  2. H.P. ACTHAR [Suspect]
     Active Substance: CORTICOTROPIN
     Indication: STRESS FRACTURE
     Dosage: 5 TIMES WEEKLY
     Route: 058
     Dates: start: 201812
  3. H.P. ACTHAR [Suspect]
     Active Substance: CORTICOTROPIN
     Indication: RHEUMATOID ARTHRITIS
     Dosage: 5 TIMES WEEKLY
     Route: 058
     Dates: start: 201812
  4. EVENITY [Suspect]
     Active Substance: ROMOSOZUMAB-AQQG
     Indication: RHEUMATOID ARTHRITIS
     Dates: start: 201909
  5. EVENITY [Suspect]
     Active Substance: ROMOSOZUMAB-AQQG
     Indication: OSTEOPOROSIS
     Dates: start: 201909
  6. H.P. ACTHAR [Suspect]
     Active Substance: CORTICOTROPIN
     Indication: OSTEOPOROSIS
     Dosage: 5 TIMES WEEKLY
     Route: 058
     Dates: start: 201812

REACTIONS (1)
  - Joint injury [None]
